FAERS Safety Report 6938653-6 (Version None)
Quarter: 2010Q3

REPORT INFORMATION
  Report Type: 
  Country: None (occurrence: None)
  Receive Date: 20100824
  Receipt Date: 20100812
  Transmission Date: 20110219
  Serious: Yes (Disabling, Other)
  Sender: FDA-Public Use
  Company Number: US-MYLANLABS-2010S1014665

PATIENT
  Sex: Female

DRUGS (5)
  1. LIPITOR [Suspect]
     Indication: BLOOD CHOLESTEROL INCREASED
     Route: 048
  2. LOVASTATIN [Suspect]
     Indication: BLOOD CHOLESTEROL INCREASED
     Route: 048
  3. ARTHROTEC [Concomitant]
     Indication: ARTHRITIS
  4. VALSARTAN [Concomitant]
     Indication: BLOOD PRESSURE INCREASED
  5. VERAPAMIL [Concomitant]
     Indication: BLOOD PRESSURE INCREASED

REACTIONS (3)
  - MUSCLE ATROPHY [None]
  - MUSCLE DISORDER [None]
  - MYALGIA [None]
